FAERS Safety Report 22529574 (Version 1)
Quarter: 2023Q2

REPORT INFORMATION
  Report Type: Spontaneous
  Country: US (occurrence: US)
  Receive Date: 20230607
  Receipt Date: 20230607
  Transmission Date: 20230722
  Serious: Yes (Other)
  Sender: FDA-Public Use
  Company Number: US-CELLTRION INC.-2023US011445

PATIENT

DRUGS (3)
  1. TRUXIMA [Suspect]
     Active Substance: RITUXIMAB-ABBS
     Indication: Castleman^s disease
     Dosage: 300MG WEEKLY TIMES FOUR
     Dates: start: 20230120
  2. TRUXIMA [Suspect]
     Active Substance: RITUXIMAB-ABBS
     Dosage: 300MG
     Dates: start: 20230130
  3. TRUXIMA [Suspect]
     Active Substance: RITUXIMAB-ABBS
     Dosage: 375MG/M2 WEEKLY TIMES FOUR

REACTIONS (3)
  - Castleman^s disease [Unknown]
  - Infusion related reaction [Recovered/Resolved]
  - Off label use [Unknown]
